FAERS Safety Report 17492929 (Version 1)
Quarter: 2020Q1

REPORT INFORMATION
  Report Type: Spontaneous
  Country: US (occurrence: US)
  Receive Date: 20200304
  Receipt Date: 20200304
  Transmission Date: 20200409
  Serious: No
  Sender: FDA-Public Use
  Company Number: US-GLAXOSMITHKLINE-US2020AMR035830

PATIENT
  Age: 82 Year
  Sex: Male

DRUGS (1)
  1. TRELEGY ELLIPTA [Suspect]
     Active Substance: FLUTICASONE FUROATE\UMECLIDINIUM BROMIDE\VILANTEROL TRIFENATATE
     Indication: CHRONIC OBSTRUCTIVE PULMONARY DISEASE
     Dosage: 100/62.5/25 MCG, UNK
     Route: 065
     Dates: start: 2018

REACTIONS (3)
  - Oxygen therapy [Unknown]
  - Skin abrasion [Unknown]
  - Fall [Unknown]

NARRATIVE: CASE EVENT DATE: 202002
